FAERS Safety Report 22623551 (Version 2)
Quarter: 2023Q2

REPORT INFORMATION
  Report Type: Report from Study
  Country: IL (occurrence: None)
  Receive Date: 20230621
  Receipt Date: 20230623
  Transmission Date: 20230722
  Serious: Yes (Hospitalization)
  Sender: FDA-Public Use
  Company Number: IL-Eisai Medical Research-EC-2023-142814

PATIENT
  Age: 76 Year
  Sex: Female
  Weight: 70.2 kg

DRUGS (14)
  1. LENVATINIB [Suspect]
     Active Substance: LENVATINIB
     Indication: Endometrial cancer
     Route: 048
     Dates: start: 20221228, end: 20230612
  2. PEMBROLIZUMAB [Suspect]
     Active Substance: PEMBROLIZUMAB
     Indication: Endometrial cancer
     Dosage: DOSE UNKNOWN
     Route: 042
     Dates: start: 20221228, end: 20230604
  3. ALDACTONE [Concomitant]
     Active Substance: SPIRONOLACTONE
     Dates: start: 20131107
  4. BROTIZOLAM [Concomitant]
     Active Substance: BROTIZOLAM
     Dates: start: 20060117
  5. OXAZEPAM [Concomitant]
     Active Substance: OXAZEPAM
     Dates: start: 20060117
  6. CANDOR [Concomitant]
     Dates: start: 20200218
  7. AMLODIPINE [Concomitant]
     Active Substance: AMLODIPINE BESYLATE
     Dates: start: 20200527
  8. SLOW-K [Concomitant]
     Active Substance: POTASSIUM CHLORIDE
     Dates: start: 20200423
  9. NEXIUM [Concomitant]
     Active Substance: ESOMEPRAZOLE MAGNESIUM
     Dates: start: 20210616
  10. PREDNISONE [Concomitant]
     Active Substance: PREDNISONE
     Dates: start: 20210830
  11. ZALDIAR [Concomitant]
     Active Substance: ACETAMINOPHEN\TRAMADOL HYDROCHLORIDE
     Dates: start: 20220222
  12. ASPIRIN [Concomitant]
     Active Substance: ASPIRIN
     Dates: start: 20230417
  13. LEVOTHYROXINE [Concomitant]
     Active Substance: LEVOTHYROXINE
     Dates: start: 20230411
  14. IRON [Concomitant]
     Active Substance: IRON
     Dates: start: 20220915

REACTIONS (1)
  - Diverticulitis [Not Recovered/Not Resolved]

NARRATIVE: CASE EVENT DATE: 20230606
